FAERS Safety Report 6424162-X (Version None)
Quarter: 2009Q4

REPORT INFORMATION
  Report Type: 
  Country: None (occurrence: None)
  Receive Date: 20091102
  Receipt Date: 20091023
  Transmission Date: 20100525
  Serious: Yes (Other)
  Sender: FDA-Public Use
  Company Number: US-ABBOTT-09P-163-0604895-00

PATIENT
  Age: 56 Year
  Sex: Male
  Weight: 158.9 kg

DRUGS (8)
  1. TRICOR [Suspect]
     Indication: BLOOD TRIGLYCERIDES INCREASED
     Dates: start: 20050214
  2. TRICOR [Suspect]
     Dates: start: 20000731, end: 20020114
  3. TRICOR [Suspect]
     Dates: start: 20020114, end: 20050214
  4. ALEVE [Suspect]
     Indication: ARTHRALGIA
     Dosage: UNKNOWN
     Dates: start: 20080101, end: 20080101
  5. COUMADIN [Concomitant]
     Indication: ATRIAL FIBRILLATION
     Dosage: UNKNOWN
  6. ATENOLOL [Concomitant]
     Indication: CARDIAC FAILURE CONGESTIVE
     Dosage: UNKNOWN
  7. FLOMAX [Concomitant]
     Indication: PROSTATIC DISORDER
     Dosage: UNKNOWN
  8. UNKNOWN DIURETICS [Concomitant]
     Indication: CARDIAC FAILURE CONGESTIVE

REACTIONS (6)
  - ARTHRALGIA [None]
  - BLOOD UREA INCREASED [None]
  - GLOMERULAR FILTRATION RATE INCREASED [None]
  - HAEMOGLOBIN DECREASED [None]
  - POLYP [None]
  - RENAL DISORDER [None]
